FAERS Safety Report 8987779 (Version 2)
Quarter: 2013Q1

REPORT INFORMATION
  Report Type: Spontaneous
  Country: US (occurrence: US)
  Receive Date: 20121227
  Receipt Date: 20130111
  Transmission Date: 20140127
  Serious: No
  Sender: FDA-Public Use
  Company Number: US-PFIZER INC-2012325455

PATIENT
  Age: 44 Year
  Sex: Male
  Weight: 82.09 kg

DRUGS (3)
  1. INLYTA [Suspect]
     Indication: RENAL CANCER METASTATIC
     Dosage: 5 MG, 2X/DAY
     Route: 048
     Dates: start: 20120925, end: 20121221
  2. METOPROLOL [Concomitant]
     Indication: HYPERTENSION
     Dosage: 50 MG, 1X/DAY
  3. HCTZ [Concomitant]

REACTIONS (2)
  - Dyskinesia [Unknown]
  - Rash [Not Recovered/Not Resolved]
